FAERS Safety Report 4888188-X (Version None)
Quarter: 2006Q1

REPORT INFORMATION
  Report Type: 
  Country: None (occurrence: None)
  Receive Date: 20060119
  Receipt Date: 20060108
  Transmission Date: 20060701
  Serious: Yes (Hospitalization, Other)
  Sender: FDA-Public Use
  Company Number: 2006006645

PATIENT
  Age: 74 Year
  Sex: Male

DRUGS (14)
  1. TIKOSYN [Suspect]
     Indication: ILL-DEFINED DISORDER
     Dosage: 500 MCG (250 MCG, 2 IN 1 D), ORAL
     Route: 048
     Dates: start: 20060104
  2. METOPROLOL (METOPROLOL) [Concomitant]
  3. ZETIA [Concomitant]
  4. GLYBURIDE [Concomitant]
  5. LASIX [Concomitant]
  6. DIGOXIN [Concomitant]
  7. LIPITOR [Concomitant]
  8. LISINOPRIL [Concomitant]
  9. ISOSORBIDE MONONITRATE [Concomitant]
  10. LEVOTHYROXINE SODIUM [Concomitant]
  11. OMEPRAZOLE [Concomitant]
  12. WARFARIN SODIUM [Concomitant]
  13. SPIRONOLACTONE [Concomitant]
  14. FERROUS GLUCONATE (FERROUS GLUCONATE) [Concomitant]

REACTIONS (1)
  - PANCREATITIS ACUTE [None]
